FAERS Safety Report 8158521-4 (Version None)
Quarter: 2012Q1

REPORT INFORMATION
  Report Type: 
  Country: None (occurrence: None)
  Receive Date: 20120223
  Receipt Date: 20120218
  Transmission Date: 20120608
  Serious: No
  Sender: FDA-Public Use
  Company Number: US-PFIZER INC-2012043771

PATIENT
  Sex: Female
  Weight: 29.478 kg

DRUGS (1)
  1. ZMAX [Suspect]
     Indication: PHARYNGITIS STREPTOCOCCAL
     Dosage: FIVE OR SIX TEASPOONFUL
     Route: 048
     Dates: start: 20120218

REACTIONS (2)
  - DIARRHOEA [None]
  - VOMITING [None]
